FAERS Safety Report 17174815 (Version 1)
Quarter: 2019Q4

REPORT INFORMATION
  Report Type: Spontaneous
  Country: US (occurrence: US)
  Receive Date: 20191218
  Receipt Date: 20191218
  Transmission Date: 20200122
  Serious: No
  Sender: FDA-Public Use
  Company Number: None

PATIENT
  Age: 35 Year
  Sex: Female
  Weight: 67.5 kg

DRUGS (4)
  1. MULTI VITAMINS [Concomitant]
     Active Substance: VITAMINS
  2. ALIVE GUMMIES [Concomitant]
  3. NEW CHAPTER VITAMIN C [Concomitant]
  4. XARELTO [Suspect]
     Active Substance: RIVAROXABAN
     Indication: DEEP VEIN THROMBOSIS
     Dosage: ?          QUANTITY:2 CAPSULE(S);?
     Dates: start: 20191205

REACTIONS (3)
  - Dyspnoea [None]
  - Nightmare [None]
  - Panic attack [None]

NARRATIVE: CASE EVENT DATE: 20191217
